FAERS Safety Report 7293155-5 (Version None)
Quarter: 2011Q1

REPORT INFORMATION
  Report Type: 
  Country: None (occurrence: None)
  Receive Date: 20110210
  Receipt Date: 20110210
  Transmission Date: 20110831
  Serious: Yes (Hospitalization)
  Sender: FDA-Public Use
  Company Number: None

PATIENT
  Age: 60 Year
  Sex: Male
  Weight: 73.11 kg

DRUGS (2)
  1. HUMALOG [Suspect]
     Indication: DIABETES MELLITUS
     Dosage: SLIDING SCALE 1 UNIT/DUAL PRN AND CMEALS SQ
     Route: 058
  2. LANTUS [Suspect]
     Indication: DIABETES MELLITUS
     Dosage: 25 UNITS TWICE DAILY SQ
     Route: 058

REACTIONS (2)
  - LOSS OF CONSCIOUSNESS [None]
  - HYPOGLYCAEMIA [None]
